FAERS Safety Report 8941994 (Version 1)
Quarter: 2012Q4

REPORT INFORMATION
  Report Type: Report from Study
  Country: US (occurrence: US)
  Receive Date: 20121203
  Receipt Date: 20121203
  Transmission Date: 20130627
  Serious: Yes (Other)
  Sender: FDA-Public Use
  Company Number: US-009507513-1211USA009881

PATIENT
  Age: 7 Year
  Sex: Male

DRUGS (3)
  1. TEMOZOLOMIDE [Suspect]
     Indication: NEUROBLASTOMA
     Dosage: 150 mg/m2 for 5 days
     Route: 048
     Dates: start: 20100813
  2. BEVACIZUMAB [Suspect]
     Indication: NEUROBLASTOMA
     Dosage: 15 mg/kg per dose on day 1
     Route: 042
     Dates: start: 20100813
  3. IRINOTECAN HYDROCHLORIDE [Suspect]
     Indication: NEUROBLASTOMA
     Dosage: 50 mg per day for 5 days
     Route: 042
     Dates: start: 20100813

REACTIONS (1)
  - Alanine aminotransferase increased [Unknown]
